FAERS Safety Report 4660476-1 (Version None)
Quarter: 2005Q2

REPORT INFORMATION
  Report Type: 
  Country: None (occurrence: None)
  Receive Date: 20050512
  Receipt Date: 20050506
  Transmission Date: 20051028
  Serious: Yes (Death, Other)
  Sender: FDA-Public Use
  Company Number: HCM-0062

PATIENT
  Age: 66 Year
  Sex: Male

DRUGS (15)
  1. HYCAMTIN [Suspect]
     Dosage: 1.68MG PER DAY
     Route: 042
     Dates: start: 20020422, end: 20020426
  2. TRIAZOLAM [Concomitant]
     Dosage: .25MG PER DAY
     Route: 048
  3. ISOSORBIDE DINITRATE [Concomitant]
     Dosage: 40MG PER DAY
  4. WARFARIN POTASSIUM [Concomitant]
     Dosage: 2MG PER DAY
     Route: 048
  5. ASPIRIN [Concomitant]
     Dosage: 100MG PER DAY
     Route: 048
  6. MAGNESIUM OXIDE [Concomitant]
     Dosage: 1G PER DAY
     Route: 048
  7. SM [Concomitant]
     Dosage: 4G PER DAY
     Route: 048
  8. CLOTIAZEPAM [Concomitant]
     Dosage: .15MG PER DAY
     Route: 048
  9. FAMOTIDINE [Concomitant]
     Dosage: 40MG PER DAY
     Route: 048
  10. AZOSEMIDE [Concomitant]
     Dosage: 30MG PER DAY
     Route: 048
  11. MEXILETINE HYDROCHLORIDE [Concomitant]
     Dosage: 300MG PER DAY
     Route: 048
  12. ALLOPURINOL [Concomitant]
     Dosage: 300MG PER DAY
     Route: 048
  13. DEMETHYLCHLORTETRACYCLINE HYDROCHLORIDE [Concomitant]
     Dosage: 450MG PER DAY
     Route: 048
     Dates: start: 20020418, end: 20020506
  14. POTASSIUM CHLORIDE [Concomitant]
     Dosage: 2400MG PER DAY
     Route: 048
     Dates: start: 20020415, end: 20020425
  15. GRANISETRON  HCL [Concomitant]
     Dosage: 3MG PER DAY
     Route: 042
     Dates: start: 20020422, end: 20020426

REACTIONS (8)
  - BLOOD ALKALINE PHOSPHATASE INCREASED [None]
  - C-REACTIVE PROTEIN INCREASED [None]
  - CONDITION AGGRAVATED [None]
  - HEPATIC FUNCTION ABNORMAL [None]
  - LEUKOPENIA [None]
  - NEUTROPENIA [None]
  - SMALL CELL LUNG CANCER STAGE UNSPECIFIED [None]
  - THROMBOCYTOPENIA [None]
